FAERS Safety Report 9526966 (Version 1)
Quarter: 2013Q3

REPORT INFORMATION
  Report Type: Spontaneous
  Country: US (occurrence: US)
  Receive Date: 20130916
  Receipt Date: 20130916
  Transmission Date: 20140515
  Serious: Yes (Death)
  Sender: FDA-Public Use
  Company Number: CHPA2013US014258

PATIENT
  Age: 79 Year
  Sex: Male

DRUGS (1)
  1. EXCEDRIN TENSION HEADACHE [Suspect]
     Dosage: UNK, UNK

REACTIONS (1)
  - Death [Fatal]
